FAERS Safety Report 6314555-3 (Version None)
Quarter: 2009Q3

REPORT INFORMATION
  Report Type: 
  Country: None (occurrence: None)
  Receive Date: 20090818
  Receipt Date: 20090818
  Transmission Date: 20100115
  Serious: Yes (Other)
  Sender: FDA-Public Use
  Company Number: None

PATIENT
  Sex: Male
  Weight: 69.8539 kg

DRUGS (2)
  1. DIVALPROEX EXTENDED-RELEASE [Suspect]
     Indication: BIPOLAR DISORDER
     Dosage: 500 MG TWICE DAILY BY MOUTH
     Route: 048
     Dates: start: 20090727, end: 20090804
  2. DIVALPROEX EXTENDED-RELEASE [Suspect]
     Indication: DEMENTIA
     Dosage: 500 MG TWICE DAILY BY MOUTH
     Route: 048
     Dates: start: 20090727, end: 20090804

REACTIONS (4)
  - BLEPHAROSPASM [None]
  - FALL [None]
  - HYPOTONIA [None]
  - TREMOR [None]
